FAERS Safety Report 25689347 (Version 1)
Quarter: 2025Q3

REPORT INFORMATION
  Report Type: Spontaneous
  Country: US (occurrence: US)
  Receive Date: 20250818
  Receipt Date: 20250818
  Transmission Date: 20251021
  Serious: Yes (Hospitalization)
  Sender: CHEPLAPHARM
  Company Number: US-CHEPLA-2025009821

PATIENT
  Age: 45 Year
  Sex: Female

DRUGS (6)
  1. HYDROXYUREA [Suspect]
     Active Substance: HYDROXYUREA
     Indication: Chronic myeloid leukaemia
     Dosage: DAILY DOSE: 2 GRAM
     Dates: start: 20230720
  2. ASCIMINIB [Suspect]
     Active Substance: ASCIMINIB
     Indication: Chronic myeloid leukaemia
     Dates: start: 20230726
  3. ASCIMINIB [Suspect]
     Active Substance: ASCIMINIB
     Indication: Chronic myeloid leukaemia
     Dosage: DAILY DOSE: 40 MILLIGRAM
  4. PREDNISONE [Concomitant]
     Active Substance: PREDNISONE
     Indication: Graft versus host disease in skin
     Route: 048
  5. DASATINIB [Concomitant]
     Active Substance: DASATINIB
     Indication: Drug therapy
     Dates: start: 201812, end: 2020
  6. PONATINIB [Concomitant]
     Active Substance: PONATINIB
     Dosage: DAILY DOSE: 15 MILLIGRAM
     Dates: start: 202310

REACTIONS (2)
  - Graft versus host disease in skin [Recovered/Resolved]
  - Skin toxicity [Unknown]

NARRATIVE: CASE EVENT DATE: 20230701
